FAERS Safety Report 8321654 (Version 2)
Quarter: 2014Q4

REPORT INFORMATION
  Report Type: Spontaneous
  Country: US (occurrence: US)
  Receive Date: 20100113
  Receipt Date: 20141104
  Transmission Date: 20150529
  Serious: Yes (Death)
  Sender: FDA-Public Use
  Company Number: US-BAYER-201010616GPV

PATIENT
  Age: 16 Year
  Sex: Female

DRUGS (3)
  1. PARACETAMOL + DIPHENHYDRAMINE [Suspect]
     Active Substance: ACETAMINOPHEN\DIPHENHYDRAMINE
     Indication: COMPLETED SUICIDE
     Route: 062
  2. OXYCODONE W/PARACETAMOL [Suspect]
     Active Substance: ACETAMINOPHEN\OXYCODONE HYDROCHLORIDE
     Indication: COMPLETED SUICIDE
     Route: 062
  3. HYDRALAZINE [Suspect]
     Active Substance: HYDRALAZINE HYDROCHLORIDE
     Indication: COMPLETED SUICIDE

REACTIONS (1)
  - Toxicity to various agents [Fatal]
